FAERS Safety Report 21869269 (Version 1)
Quarter: 2023Q1

REPORT INFORMATION
  Report Type: Report from Study
  Country: US (occurrence: US)
  Receive Date: 20230117
  Receipt Date: 20230117
  Transmission Date: 20230418
  Serious: No
  Sender: FDA-Public Use
  Company Number: US-ABBVIE-4241015

PATIENT
  Age: 49 Year
  Sex: Female

DRUGS (1)
  1. HUMIRA [Suspect]
     Active Substance: ADALIMUMAB
     Indication: Colitis ulcerative
     Route: 058
     Dates: start: 20221007, end: 20221215

REACTIONS (6)
  - Defaecation urgency [Unknown]
  - Haematochezia [Recovered/Resolved]
  - Discomfort [Unknown]
  - Anxiety [Unknown]
  - Stress [Unknown]
  - Anaemia [Unknown]

NARRATIVE: CASE EVENT DATE: 20221007
